FAERS Safety Report 25945584 (Version 2)
Quarter: 2025Q4

REPORT INFORMATION
  Report Type: Spontaneous
  Country: EU (occurrence: EU)
  Receive Date: 20251021
  Receipt Date: 20251201
  Transmission Date: 20260118
  Serious: Yes (Hospitalization)
  Sender: ABBVIE
  Company Number: None

PATIENT
  Age: 59 Year
  Sex: Female

DRUGS (14)
  1. RINVOQ [Suspect]
     Active Substance: UPADACITINIB
     Indication: Rheumatoid arthritis
     Dosage: PROLONGED-RELEASE TABLET
     Route: 048
     Dates: start: 202409, end: 20250826
  2. RINVOQ [Suspect]
     Active Substance: UPADACITINIB
     Indication: Rheumatoid arthritis
     Route: 048
  3. RINVOQ [Suspect]
     Active Substance: UPADACITINIB
     Indication: Rheumatoid arthritis
     Route: 048
     Dates: start: 20220325
  4. CARBOMER [Concomitant]
     Active Substance: CARBOMER
     Indication: Dry eye
     Dosage: EYE DROP?1 DROP INTO BOTH EYES 1-4 TIMES/DAY AS NECESSARY?STRENGTH: 2.5 MILLIGRAM
     Route: 065
  5. ZYPREXA [Concomitant]
     Active Substance: OLANZAPINE
     Indication: Sleep disorder therapy
     Dosage: COATED TABLET?0,25-0,5 TABLETS
     Route: 048
     Dates: start: 2006
  6. Pevisone [Concomitant]
     Indication: Fungal skin infection
     Dosage: TWICE A DAY FOR 2 WEEKS
     Route: 065
  7. Calcichew D3 Forte sitruuna [Concomitant]
     Indication: Mineral supplementation
     Dosage: 1-2 TABLETS/DAY
     Route: 048
     Dates: start: 2001
  8. ACETAMINOPHEN\CODEINE PHOSPHATE [Concomitant]
     Active Substance: ACETAMINOPHEN\CODEINE PHOSPHATE
     Indication: Pain
     Dosage: 1-2 TABLETS 1-3 TIMES/DAY AS NECESSARY
  9. IBUPROFEN [Concomitant]
     Active Substance: IBUPROFEN
     Indication: Rheumatoid arthritis
     Dosage: 1 TABLET 1-3 TIMES/DAY AS NECESSARY
  10. BISOPROLOL [Concomitant]
     Active Substance: BISOPROLOL
     Indication: Palpitations
     Dosage: FILM-COATED TABLET?1/2 -1 TABLET 1-2 TIMES/DAY AS NECESSARY
     Route: 048
  11. DESLORATADINE [Concomitant]
     Active Substance: DESLORATADINE
     Indication: Hypersensitivity
     Dosage: FILM-COATED TABLET?1 TABLET ONCE A DAY AS NECESSARY
     Route: 065
  12. ACETAMINOPHEN [Concomitant]
     Active Substance: ACETAMINOPHEN
     Indication: Pain
     Dosage: 1 TABLET 1-3 TIMES/DAY AS NECESSARY
  13. PANTOPRAZOLE [Concomitant]
     Active Substance: PANTOPRAZOLE
     Indication: Prophylaxis against gastrointestinal ulcer
     Dosage: 1 TABLET EVERY MORNING DURING ANTI-INFLAMMATORY DRUG TREATMENT
     Route: 065
  14. PREDNISOLONE [Concomitant]
     Active Substance: PREDNISOLONE
     Indication: Arthropathy
     Dosage: AS NECESSARY 1,5-1 TABLET IN THE MORNINGS
     Route: 065

REACTIONS (24)
  - Platelet count increased [Recovering/Resolving]
  - Hepatic enzyme increased [Recovering/Resolving]
  - Abdominal pain lower [Recovering/Resolving]
  - Night sweats [Recovering/Resolving]
  - Musculoskeletal chest pain [Recovering/Resolving]
  - Nausea [Recovering/Resolving]
  - Vulvovaginal dryness [Recovering/Resolving]
  - Exercise tolerance decreased [Recovering/Resolving]
  - Cardiac disorder [Recovering/Resolving]
  - Hypertension [Recovering/Resolving]
  - Fatigue [Recovering/Resolving]
  - Renal function test abnormal [Recovering/Resolving]
  - Blood cholesterol increased [Recovering/Resolving]
  - Gait disturbance [Recovering/Resolving]
  - Urinary tract infection [Recovering/Resolving]
  - Platelet count increased [Recovering/Resolving]
  - Urinary incontinence [Recovering/Resolving]
  - Malaise [Recovering/Resolving]
  - Onychoclasis [Recovering/Resolving]
  - Dyspnoea [Recovering/Resolving]
  - General physical health deterioration [Recovering/Resolving]
  - Myalgia [Recovering/Resolving]
  - Poor quality sleep [Recovering/Resolving]
  - Myocarditis [Recovering/Resolving]

NARRATIVE: CASE EVENT DATE: 20250101
